FAERS Safety Report 15931555 (Version 1)
Quarter: 2019Q1

REPORT INFORMATION
  Report Type: Report from Study
  Country: GB (occurrence: GB)
  Receive Date: 20190207
  Receipt Date: 20190207
  Transmission Date: 20190417
  Serious: Yes (Other)
  Sender: FDA-Public Use
  Company Number: PHHY2019GB024502

PATIENT
  Sex: Male

DRUGS (1)
  1. COSENTYX [Suspect]
     Active Substance: SECUKINUMAB
     Indication: PSORIASIS
     Dosage: 300 MG, UNK (WEEK 1 LOADING DOSE)
     Route: 058
     Dates: start: 20190116

REACTIONS (5)
  - Hypertension [Unknown]
  - Mouth ulceration [Recovered/Resolved]
  - Heart rate decreased [Unknown]
  - Oropharyngeal pain [Recovered/Resolved]
  - Dizziness [Recovered/Resolved]
